FAERS Safety Report 8419571-3 (Version None)
Quarter: 2012Q2

REPORT INFORMATION
  Report Type: 
  Country: None (occurrence: None)
  Receive Date: 20120607
  Receipt Date: 20120531
  Transmission Date: 20120825
  Serious: Yes (Death, Hospitalization)
  Sender: FDA-Public Use
  Company Number: US-ROCHE-1013358

PATIENT
  Sex: Male
  Weight: 83.082 kg

DRUGS (15)
  1. ALBUTEROL SULFATE AND IPRATROPIUM BROMIDE [Concomitant]
     Dates: start: 20120426, end: 20120426
  2. SODIUM CHLORIDE [Concomitant]
     Dates: start: 20120419, end: 20120419
  3. VALPROATE SODIUM [Concomitant]
     Dates: start: 20120425, end: 20120426
  4. PHENYTOIN [Concomitant]
     Dates: start: 20120419, end: 20120419
  5. VALPROATE SODIUM [Concomitant]
     Dates: start: 20120426, end: 20120426
  6. DEXTROSE 5% AND SODIUM CHLORIDE 0.45% IN PLASTIC CONTAINER [Concomitant]
  7. SODIUM CHLORIDE [Concomitant]
     Dates: start: 20120426, end: 20120426
  8. DILANTIN [Concomitant]
  9. KEPPRA [Concomitant]
     Dosage: @440 ML PER HOUR
     Dates: start: 20120419, end: 20120424
  10. ACETAMINOPHEN [Concomitant]
     Dates: start: 20120425, end: 20120426
  11. LORAZEPAM [Concomitant]
     Dates: start: 20120425, end: 20120426
  12. POTASSIUM CHLORIDE [Concomitant]
     Dosage: 100 ML @50 ML EVERY HOUR
  13. ZELBORAF [Suspect]
     Indication: METASTATIC MALIGNANT MELANOMA
     Route: 048
     Dates: start: 20110920, end: 20120421
  14. ATIVAN [Concomitant]
  15. DEXAMETHASONE [Concomitant]

REACTIONS (9)
  - METASTATIC MALIGNANT MELANOMA [None]
  - ARTHRALGIA [None]
  - RIB FRACTURE [None]
  - CONVULSION [None]
  - FATIGUE [None]
  - SKIN PAPILLOMA [None]
  - MYALGIA [None]
  - PRURITUS [None]
  - RASH [None]
